FAERS Safety Report 13671552 (Version 1)
Quarter: 2017Q2

REPORT INFORMATION
  Report Type: Spontaneous
  Country: US (occurrence: US)
  Receive Date: 20170620
  Receipt Date: 20170620
  Transmission Date: 20170830
  Serious: Yes (Hospitalization)
  Sender: FDA-Public Use
  Company Number: US-ROCHE-1457889

PATIENT
  Age: 69 Year
  Sex: Female

DRUGS (2)
  1. XELODA [Suspect]
     Active Substance: CAPECITABINE
     Dosage: PM
     Route: 048
     Dates: start: 20140719
  2. XELODA [Suspect]
     Active Substance: CAPECITABINE
     Indication: BREAST CANCER
     Dosage: AM
     Route: 048
     Dates: start: 20140719

REACTIONS (2)
  - Dehydration [Unknown]
  - Dizziness [Unknown]

NARRATIVE: CASE EVENT DATE: 20140827
